FAERS Safety Report 11231075 (Version 1)
Quarter: 2015Q2

REPORT INFORMATION
  Report Type: Spontaneous
  Country: US (occurrence: None)
  Receive Date: 20150629
  Receipt Date: 20150629
  Transmission Date: 20150821
  Serious: Yes (Disabling)
  Sender: FDA-Public Use
  Company Number: None

PATIENT
  Age: 79 Year
  Sex: Male
  Weight: 58.97 kg

DRUGS (11)
  1. VENTILIN [Concomitant]
  2. OMEPRAZOLE. [Concomitant]
     Active Substance: OMEPRAZOLE
  3. SYMBACORT [Concomitant]
  4. LOSARTON [Concomitant]
  5. TOPROL XL [Concomitant]
     Active Substance: METOPROLOL SUCCINATE
  6. TAMAZEPAN [Concomitant]
  7. LEVOTHYROXINE [Concomitant]
     Active Substance: LEVOTHYROXINE
  8. SPIRIVA [Concomitant]
     Active Substance: TIOTROPIUM BROMIDE MONOHYDRATE
  9. ASPRIN [Concomitant]
     Active Substance: ASPIRIN
  10. ATORAVASTATIN [Concomitant]
     Active Substance: ATORVASTATIN
  11. LEVOFLOXACIN 750 MG DON^T KNOW [Suspect]
     Active Substance: LEVOFLOXACIN
     Indication: PNEUMONIA
     Dosage: 8 PILLS  ONCE DAILY
     Dates: start: 20150527, end: 20150604

REACTIONS (1)
  - Tendon rupture [None]

NARRATIVE: CASE EVENT DATE: 20150608
